FAERS Safety Report 9253406 (Version 2)
Quarter: 2013Q2

REPORT INFORMATION
  Report Type: Report from Study
  Country: US (occurrence: US)
  Receive Date: 20130425
  Receipt Date: 20130514
  Transmission Date: 20140414
  Serious: Yes (Death, Hospitalization)
  Sender: FDA-Public Use
  Company Number: US-ROCHE-1208285

PATIENT
  Age: 59 Year
  Sex: Male
  Weight: 68.1 kg

DRUGS (6)
  1. BEVACIZUMAB [Suspect]
     Indication: HEPATOCELLULAR CARCINOMA
     Dosage: LAST DOSE PRIOR TO EVENT ON 7/MAR/2013
     Route: 042
     Dates: start: 20120612
  2. ERLOTINIB [Suspect]
     Indication: HEPATOCELLULAR CARCINOMA
     Dosage: LAST DOSE PRIOR TO 20/MAR/2013
     Route: 048
  3. HUMIRA [Concomitant]
     Route: 065
     Dates: start: 2011
  4. LORTAB [Concomitant]
     Route: 065
     Dates: start: 201105
  5. BUSPAR [Concomitant]
     Route: 065
     Dates: start: 201205
  6. NADOLOL [Concomitant]
     Route: 065
     Dates: start: 201206

REACTIONS (2)
  - Hepatic failure [Fatal]
  - Gastrointestinal haemorrhage [Fatal]
